FAERS Safety Report 7314419-2 (Version None)
Quarter: 2011Q1

REPORT INFORMATION
  Report Type: 
  Country: None (occurrence: None)
  Receive Date: 20110225
  Receipt Date: 20100830
  Transmission Date: 20110831
  Serious: No
  Sender: FDA-Public Use
  Company Number: US-MYLANLABS-2010S1014915

PATIENT
  Age: 40 Year
  Sex: Female
  Weight: 63.5 kg

DRUGS (5)
  1. AMNESTEEM [Suspect]
     Indication: ACNE CYSTIC
     Dosage: ALT
     Route: 048
     Dates: start: 20100601, end: 20100801
  2. CLARAVIS [Suspect]
     Indication: ACNE CYSTIC
  3. AMNESTEEM [Suspect]
     Dosage: ALT
     Route: 048
     Dates: start: 20100601, end: 20100801
  4. SOTRET [Suspect]
     Indication: ACNE CYSTIC
  5. AMNESTEEM [Suspect]

REACTIONS (1)
  - FEELING ABNORMAL [None]
